FAERS Safety Report 4731478-1 (Version None)
Quarter: 2005Q3

REPORT INFORMATION
  Report Type: 
  Country: None (occurrence: None)
  Receive Date: 20050801
  Receipt Date: 20050801
  Transmission Date: 20060218
  Serious: Yes (Death, Hospitalization)
  Sender: FDA-Public Use
  Company Number: None

PATIENT
  Sex: Female
  Weight: 64.5 kg

DRUGS (2)
  1. PACLITAXEL [Suspect]
     Indication: NEOPLASM
     Dosage: SEE IMAGE
     Route: 042
     Dates: start: 20050707, end: 20050707
  2. CARBOPLATIN [Suspect]
     Dosage: SEE IMAGE
     Route: 042
     Dates: start: 20050707, end: 20050707

REACTIONS (6)
  - MALIGNANT NEOPLASM PROGRESSION [None]
  - MASS [None]
  - NEUTROPENIA [None]
  - PLEURAL EFFUSION [None]
  - THYMOMA MALIGNANT [None]
  - UROSEPSIS [None]
